FAERS Safety Report 6963278-6 (Version None)
Quarter: 2010Q3

REPORT INFORMATION
  Report Type: 
  Country: None (occurrence: None)
  Receive Date: 20100902
  Receipt Date: 20100827
  Transmission Date: 20110219
  Serious: Yes (Hospitalization)
  Sender: FDA-Public Use
  Company Number: US-B.I. PHARMACEUTICALS,INC./RIDGEFIELD-2010-BP-08686BP

PATIENT
  Sex: Female

DRUGS (28)
  1. SPIRIVA [Suspect]
     Indication: COUGH
     Dosage: 18 MCG
     Route: 055
     Dates: start: 20100709, end: 20100726
  2. SPIRIVA [Suspect]
     Indication: DYSPNOEA
  3. EFFIENT [Concomitant]
     Dosage: 10 MG
  4. ASPIRIN [Concomitant]
     Dosage: 325 MG
  5. AMLODIPINE [Concomitant]
     Dosage: 5 MG
  6. MIRALAX [Concomitant]
     Dosage: 17 G
  7. ASTEPRO [Concomitant]
  8. ACIPHEX [Concomitant]
     Dosage: 40 MG
  9. FERROUS SULFATE [Concomitant]
     Dosage: 5 G
  10. NITROSTAT [Concomitant]
  11. ZETIA [Concomitant]
     Dosage: 10 MG
  12. CRESTOR [Concomitant]
     Dosage: 5 MG
  13. VESICARE [Concomitant]
     Dosage: 5 MG
  14. METOPROLOL TARTRATE [Concomitant]
     Dosage: 100 MG
  15. BUMETANIDE [Concomitant]
     Dosage: 1 MG
  16. DIOVAN [Concomitant]
     Dosage: 80 MG
  17. ALEVE (CAPLET) [Concomitant]
  18. BIOTIN [Concomitant]
     Dosage: 10000 MCG
  19. SELENIUM [Concomitant]
     Dosage: 200 MCG
  20. VITAMIN E [Concomitant]
     Dosage: 1000 U
  21. CALCIUM [Concomitant]
     Dosage: 1000 MG
  22. MAGNESIUM [Concomitant]
     Dosage: 400 MG
  23. ZINC [Concomitant]
     Dosage: 15 MG
  24. FOLIC ACID [Concomitant]
     Dosage: 400 MCG
  25. COQ10 [Concomitant]
     Dosage: 100 MG
  26. FISH OIL [Concomitant]
     Dosage: 2000 U
  27. MELATONIN [Concomitant]
     Dosage: 5 MG
  28. VITAMIN D [Concomitant]
     Dosage: 1000 U

REACTIONS (5)
  - CHEST PAIN [None]
  - DRUG INEFFECTIVE [None]
  - GLOSSODYNIA [None]
  - OROPHARYNGEAL PAIN [None]
  - PAIN [None]
